FAERS Safety Report 15491337 (Version 30)
Quarter: 2020Q4

REPORT INFORMATION
  Report Type: Spontaneous
  Country: CA (occurrence: CA)
  Receive Date: 20181012
  Receipt Date: 20201202
  Transmission Date: 20210113
  Serious: Yes (Hospitalization, Other)
  Sender: FDA-Public Use
  Company Number: CA-CELLTRION INC.-2018CA022793

PATIENT

DRUGS (22)
  1. INFLECTRA [Suspect]
     Active Substance: INFLIXIMAB-DYYB
     Dosage: 5 MG/KG, 0, 2, 6, THEN EVERY 8 WEEKS
     Route: 042
     Dates: start: 20180927
  2. INFLECTRA [Suspect]
     Active Substance: INFLIXIMAB-DYYB
     Dosage: 600 MG, EVERY 6 WEEKS
     Route: 042
     Dates: start: 20200604, end: 20200716
  3. VITAMIN D [Concomitant]
     Active Substance: VITAMIN D NOS
     Dosage: UNK
     Route: 065
  4. INFLECTRA [Suspect]
     Active Substance: INFLIXIMAB-DYYB
     Indication: CROHN^S DISEASE
     Dosage: 5 MG/KG,  0, 2, 6, THEN EVERY 8 WEEKS
     Route: 042
     Dates: start: 20180913, end: 20180913
  5. INFLECTRA [Suspect]
     Active Substance: INFLIXIMAB-DYYB
     Dosage: 600 MG, EVERY 6 WEEKS
     Route: 042
     Dates: start: 20200604
  6. INFLECTRA [Suspect]
     Active Substance: INFLIXIMAB-DYYB
     Dosage: 600 MG, EVERY 6 WEEKS
     Route: 042
     Dates: start: 20190703
  7. METHOTREXATE. [Concomitant]
     Active Substance: METHOTREXATE
     Dosage: 25 MG, WEEKLY
     Route: 058
     Dates: start: 2008
  8. PLAQUENIL [Concomitant]
     Active Substance: HYDROXYCHLOROQUINE SULFATE
     Dosage: UNK
     Route: 065
  9. INFLECTRA [Suspect]
     Active Substance: INFLIXIMAB-DYYB
     Dosage: 5 MG/KG, 0, 2, 6, THEN EVERY 8 WEEKS
     Route: 042
     Dates: start: 20181107
  10. INFLECTRA [Suspect]
     Active Substance: INFLIXIMAB-DYYB
     Dosage: 5 MG/KG, 0, 2, 6, THEN EVERY 8 WEEKS
     Route: 042
     Dates: start: 20190117
  11. INFLECTRA [Suspect]
     Active Substance: INFLIXIMAB-DYYB
     Dosage: 5 MG/KG, 0, 2, 6, THEN EVERY 8 WEEKS
     Route: 042
     Dates: start: 20190425, end: 20190425
  12. INFLECTRA [Suspect]
     Active Substance: INFLIXIMAB-DYYB
     Dosage: 600 MG, EVERY 6 WEEKS
     Route: 042
     Dates: start: 20191029
  13. INFLECTRA [Suspect]
     Active Substance: INFLIXIMAB-DYYB
     Dosage: 600 MG, EVERY 6 WEEKS
     Route: 042
     Dates: start: 20200421
  14. CELEBREX [Concomitant]
     Active Substance: CELECOXIB
     Dosage: UNK
     Route: 065
  15. IRON [Concomitant]
     Active Substance: IRON
     Dosage: UNK
     Route: 065
  16. INFLECTRA [Suspect]
     Active Substance: INFLIXIMAB-DYYB
     Dosage: 600 MG, EVERY 6 WEEKS
     Route: 042
     Dates: start: 20190911
  17. INFLECTRA [Suspect]
     Active Substance: INFLIXIMAB-DYYB
     Dosage: 600 MG, EVERY 6 WEEKS
     Route: 042
     Dates: start: 20200604
  18. INFLECTRA [Suspect]
     Active Substance: INFLIXIMAB-DYYB
     Dosage: 600 MG, EVERY 6 WEEKS
     Route: 042
     Dates: start: 20201001
  19. INFLECTRA [Suspect]
     Active Substance: INFLIXIMAB-DYYB
     Dosage: 600 MG, EVERY 6 WEEKS
     Route: 042
     Dates: start: 20201113, end: 20201113
  20. CALCIUM [Concomitant]
     Active Substance: CALCIUM
     Dosage: UNK
     Route: 065
  21. INFLECTRA [Suspect]
     Active Substance: INFLIXIMAB-DYYB
     Dosage: 600 MG, EVERY 6 WEEKS
     Route: 042
     Dates: start: 20200820, end: 20200820
  22. FOLIC ACID. [Concomitant]
     Active Substance: FOLIC ACID
     Dosage: UNK
     Route: 065

REACTIONS (38)
  - Localised infection [Recovering/Resolving]
  - Condition aggravated [Recovered/Resolved]
  - Acne [Not Recovered/Not Resolved]
  - Skin plaque [Unknown]
  - Abdominal pain upper [Unknown]
  - Anal fissure [Unknown]
  - Arthralgia [Unknown]
  - Sinusitis [Unknown]
  - Postoperative wound complication [Recovered/Resolved]
  - Feeling hot [Recovered/Resolved]
  - Cough [Recovered/Resolved]
  - Eye pruritus [Recovered/Resolved]
  - Inappropriate schedule of product administration [Unknown]
  - Off label use [Unknown]
  - Vascular device occlusion [Recovered/Resolved]
  - Prostatic specific antigen increased [Unknown]
  - Productive cough [Not Recovered/Not Resolved]
  - Heart rate increased [Unknown]
  - Dyspnoea [Recovered/Resolved]
  - Urinary tract infection [Recovered/Resolved]
  - Splinter [Recovering/Resolving]
  - Post procedural discharge [Recovered/Resolved]
  - Allergy to animal [Recovered/Resolved]
  - Gastrointestinal pain [Unknown]
  - Weight increased [Unknown]
  - Rash [Not Recovered/Not Resolved]
  - Rhinorrhoea [Recovered/Resolved]
  - Pyelonephritis [Recovered/Resolved]
  - Postoperative wound infection [Recovered/Resolved]
  - Induration [Recovered/Resolved]
  - Carpal tunnel syndrome [Unknown]
  - Blood pressure fluctuation [Unknown]
  - Dizziness [Unknown]
  - Influenza like illness [Recovered/Resolved]
  - Off label use [Unknown]
  - Scab [Unknown]
  - Skin exfoliation [Unknown]
  - Nasal congestion [Recovered/Resolved]

NARRATIVE: CASE EVENT DATE: 2018
